FAERS Safety Report 6055884-0 (Version None)
Quarter: 2009Q1

REPORT INFORMATION
  Report Type: 
  Country: None (occurrence: None)
  Receive Date: 20090128
  Receipt Date: 20090121
  Transmission Date: 20090719
  Serious: No
  Sender: FDA-Public Use
  Company Number: US-B.I. PHARMACEUTICALS,INC./RIDGEFIELD-2009-BP-00821BP

PATIENT
  Sex: Male

DRUGS (3)
  1. ATROVENT HFA [Suspect]
     Indication: RHINORRHOEA
     Dosage: 68MCG
     Route: 055
     Dates: start: 20050101, end: 20090105
  2. LIPITOR [Concomitant]
     Indication: BLOOD CHOLESTEROL
     Dosage: 20MG
     Route: 048
     Dates: start: 20000101
  3. OMEPRAZOLE [Concomitant]
     Indication: GASTROOESOPHAGEAL REFLUX DISEASE
     Dosage: 40MG
     Route: 048
     Dates: start: 20000101

REACTIONS (1)
  - DENTAL CARIES [None]
